FAERS Safety Report 17784236 (Version 8)
Quarter: 2025Q3

REPORT INFORMATION
  Report Type: Spontaneous
  Country: US (occurrence: US)
  Receive Date: 20200513
  Receipt Date: 20250722
  Transmission Date: 20251021
  Serious: Yes (Other)
  Sender: PFIZER
  Company Number: US-PFIZER INC-2020189265

PATIENT
  Age: 33 Year
  Sex: Female

DRUGS (26)
  1. DOCETAXEL [Suspect]
     Active Substance: DOCETAXEL
     Indication: Breast cancer stage III
     Dates: start: 20160105, end: 20160605
  2. DOCETAXEL [Suspect]
     Active Substance: DOCETAXEL
  3. DOCETAXEL [Suspect]
     Active Substance: DOCETAXEL
     Dates: start: 20160324, end: 20160324
  4. DOCETAXEL [Suspect]
     Active Substance: DOCETAXEL
     Dates: start: 20160331, end: 20160331
  5. DOCETAXEL [Suspect]
     Active Substance: DOCETAXEL
     Dates: start: 20160407, end: 20160407
  6. DOCETAXEL [Suspect]
     Active Substance: DOCETAXEL
     Dates: start: 20160414, end: 20160414
  7. DOCETAXEL [Suspect]
     Active Substance: DOCETAXEL
     Dates: start: 20160421, end: 20160421
  8. DOCETAXEL [Suspect]
     Active Substance: DOCETAXEL
     Dates: start: 20160429, end: 20160429
  9. DOCETAXEL [Suspect]
     Active Substance: DOCETAXEL
     Dates: start: 20160505, end: 20160505
  10. DOCETAXEL [Suspect]
     Active Substance: DOCETAXEL
     Dates: start: 20160512, end: 20160512
  11. DOCETAXEL [Suspect]
     Active Substance: DOCETAXEL
     Dates: start: 20160519, end: 20160519
  12. DOCETAXEL [Suspect]
     Active Substance: DOCETAXEL
     Dates: start: 20160526, end: 20160526
  13. DOCETAXEL [Suspect]
     Active Substance: DOCETAXEL
     Dates: start: 20160602, end: 20160602
  14. TAXOTERE [Suspect]
     Active Substance: DOCETAXEL
     Indication: Breast cancer stage III
     Dates: start: 20160324, end: 20160324
  15. TAXOTERE [Suspect]
     Active Substance: DOCETAXEL
     Dates: start: 20160331, end: 20160331
  16. TAXOTERE [Suspect]
     Active Substance: DOCETAXEL
     Dates: start: 20160407, end: 20160407
  17. TAXOTERE [Suspect]
     Active Substance: DOCETAXEL
     Dates: start: 20160414, end: 20160414
  18. TAXOTERE [Suspect]
     Active Substance: DOCETAXEL
     Dates: start: 20160421, end: 20160421
  19. TAXOTERE [Suspect]
     Active Substance: DOCETAXEL
     Dates: start: 20160429, end: 20160429
  20. TAXOTERE [Suspect]
     Active Substance: DOCETAXEL
     Dates: start: 20160505, end: 20160505
  21. TAXOTERE [Suspect]
     Active Substance: DOCETAXEL
     Dates: start: 20160512, end: 20160512
  22. TAXOTERE [Suspect]
     Active Substance: DOCETAXEL
     Dates: start: 20160519, end: 20160519
  23. TAXOTERE [Suspect]
     Active Substance: DOCETAXEL
     Dates: start: 20160526, end: 20160526
  24. TAXOTERE [Suspect]
     Active Substance: DOCETAXEL
     Dates: start: 20160602, end: 20160602
  25. ADRIAMYCIN [Concomitant]
     Active Substance: DOXORUBICIN HYDROCHLORIDE
     Indication: Chemotherapy
  26. CYTOXAN [Concomitant]
     Active Substance: CYCLOPHOSPHAMIDE
     Indication: Chemotherapy

REACTIONS (6)
  - Lacrimation increased [Not Recovered/Not Resolved]
  - Dacryostenosis acquired [Not Recovered/Not Resolved]
  - Dry eye [Not Recovered/Not Resolved]
  - Depression [Unknown]
  - Skin irritation [Unknown]
  - Anxiety [Unknown]

NARRATIVE: CASE EVENT DATE: 20160101
